FAERS Safety Report 17225576 (Version 2)
Quarter: 2020Q1

REPORT INFORMATION
  Report Type: Spontaneous
  Country: JP (occurrence: JP)
  Receive Date: 20200102
  Receipt Date: 20200309
  Transmission Date: 20200409
  Serious: Yes (Life-Threatening, Disabling, Other)
  Sender: FDA-Public Use
  Company Number: JP-BRISTOL-MYERS SQUIBB COMPANY-BMS-2019-123772

PATIENT
  Age: 85 Year
  Sex: Female

DRUGS (3)
  1. LEPRINTON [Concomitant]
     Active Substance: CARBIDOPA\LEVODOPA
     Indication: CEREBROVASCULAR ACCIDENT
     Dosage: 100 MILLIGRAM, BID
     Route: 065
     Dates: start: 20190328, end: 20191101
  2. TAKECAB [Concomitant]
     Active Substance: VONOPRAZAN FUMURATE
     Indication: CEREBROVASCULAR ACCIDENT
     Dosage: 100 MILLIGRAM, QD
     Route: 065
     Dates: start: 20190328, end: 20191101
  3. ELIQUIS [Suspect]
     Active Substance: APIXABAN
     Indication: CEREBROVASCULAR ACCIDENT
     Dosage: 2.5 MILLIGRAM, BID
     Route: 050
     Dates: start: 20190328, end: 20191101

REACTIONS (3)
  - Sputum retention [Unknown]
  - Seizure [Recovered/Resolved]
  - Cerebral haemorrhage [Recovered/Resolved with Sequelae]

NARRATIVE: CASE EVENT DATE: 20191101
